FAERS Safety Report 6882952-3 (Version None)
Quarter: 2010Q3

REPORT INFORMATION
  Report Type: 
  Country: None (occurrence: None)
  Receive Date: 20100727
  Receipt Date: 20100719
  Transmission Date: 20110219
  Serious: Yes (Death, Life-Threatening, Other)
  Sender: FDA-Public Use
  Company Number: 2010EU003310

PATIENT
  Age: 58 Year
  Sex: Female
  Weight: 60 kg

DRUGS (1)
  1. FK463 (MICAFUNGIN) INJECTION [Suspect]
     Indication: ANTIFUNGAL PROPHYLAXIS
     Dosage: 100 MG, UID/QD, IV NOS
     Route: 042
     Dates: start: 20100603, end: 20100625

REACTIONS (2)
  - BRAIN STEM HAEMORRHAGE [None]
  - HYPOXIC-ISCHAEMIC ENCEPHALOPATHY [None]
